FAERS Safety Report 5551926-7 (Version None)
Quarter: 2007Q4

REPORT INFORMATION
  Report Type: 
  Country: None (occurrence: None)
  Receive Date: 20071212
  Receipt Date: 20070604
  Transmission Date: 20080405
  Serious: No
  Sender: FDA-Public Use
  Company Number: US-AMGEN-KDL227863

PATIENT
  Sex: Female

DRUGS (2)
  1. ENBREL [Suspect]
     Indication: RHEUMATOID ARTHRITIS
     Route: 058
     Dates: start: 20011023
  2. METHOTREXATE [Concomitant]
     Route: 048

REACTIONS (9)
  - ARTHRALGIA [None]
  - COUGH [None]
  - DIARRHOEA [None]
  - FALL [None]
  - INFLUENZA [None]
  - JOINT STIFFNESS [None]
  - PHARYNGOLARYNGEAL PAIN [None]
  - PYREXIA [None]
  - RIB FRACTURE [None]
